FAERS Safety Report 9772076 (Version 1)
Quarter: 2013Q4

REPORT INFORMATION
  Report Type: Spontaneous
  Country: US (occurrence: US)
  Receive Date: 20131219
  Receipt Date: 20131219
  Transmission Date: 20140711
  Serious: Yes (Other)
  Sender: FDA-Public Use
  Company Number: US-JNJFOC-20131207114

PATIENT
  Sex: Female
  Weight: 64.41 kg

DRUGS (10)
  1. REMICADE [Suspect]
     Indication: PRODUCT USED FOR UNKNOWN INDICATION
     Route: 042
     Dates: end: 2011
  2. ESTRADIOL [Concomitant]
     Route: 067
  3. SINEMET [Concomitant]
     Route: 065
  4. TYLENOL [Concomitant]
     Route: 065
  5. CYCLOBENZAPRINE [Concomitant]
     Route: 065
  6. RESTASIS [Concomitant]
     Route: 047
  7. MIRAPEX [Concomitant]
     Route: 065
  8. IRON [Concomitant]
     Route: 065
  9. PROTONIX [Concomitant]
     Route: 065
  10. STOOL SOFTENER [Concomitant]
     Route: 065

REACTIONS (2)
  - Squamous cell carcinoma [Recovered/Resolved]
  - Drug hypersensitivity [Unknown]
